FAERS Safety Report 10437885 (Version 1)
Quarter: 2014Q3

REPORT INFORMATION
  Report Type: Spontaneous
  Country: US (occurrence: US)
  Receive Date: 20140908
  Receipt Date: 20140908
  Transmission Date: 20150326
  Serious: Yes (Other)
  Sender: FDA-Public Use
  Company Number: US-BRISTOL-MYERS SQUIBB COMPANY-21034723

PATIENT
  Age: 23 Year
  Sex: Male

DRUGS (1)
  1. ABILIFY [Suspect]
     Active Substance: ARIPIPRAZOLE

REACTIONS (7)
  - Tachyphrenia [Unknown]
  - Self-injurious ideation [Unknown]
  - Restlessness [Unknown]
  - Discomfort [Unknown]
  - Feeling abnormal [Unknown]
  - Mental disorder [Unknown]
  - Boredom [Unknown]
